FAERS Safety Report 21322139 (Version 1)
Quarter: 2022Q3

REPORT INFORMATION
  Report Type: Report from Study
  Country: MX (occurrence: MX)
  Receive Date: 20220912
  Receipt Date: 20220912
  Transmission Date: 20221027
  Serious: Yes (Other)
  Sender: FDA-Public Use
  Company Number: MX-NOVARTISPH-NVSC2022MX204617

PATIENT
  Sex: Female

DRUGS (1)
  1. ACLASTA [Suspect]
     Active Substance: ZOLEDRONIC ACID
     Indication: Osteoporosis
     Dosage: 5 MG, Q12MO (STARTED TREATMENT 7 YEARS AGO  APPROXIMATELY)
     Route: 065

REACTIONS (4)
  - Foot fracture [Unknown]
  - Fall [Unknown]
  - Gait inability [Unknown]
  - Overweight [Unknown]
